FAERS Safety Report 7232892-5 (Version None)
Quarter: 2011Q1

REPORT INFORMATION
  Report Type: 
  Country: None (occurrence: None)
  Receive Date: 20110119
  Receipt Date: 20110106
  Transmission Date: 20110831
  Serious: Yes (Hospitalization, Other)
  Sender: FDA-Public Use
  Company Number: PHHY2011CA01294

PATIENT
  Sex: Female

DRUGS (1)
  1. ACLASTA [Suspect]
     Indication: OSTEOPOROSIS
     Dates: start: 20100303

REACTIONS (8)
  - PAIN [None]
  - PROCEDURAL COMPLICATION [None]
  - BLOOD CALCIUM DECREASED [None]
  - FRACTURE [None]
  - FALL [None]
  - GASTROENTERITIS VIRAL [None]
  - GAIT DISTURBANCE [None]
  - BRONCHITIS [None]
